FAERS Safety Report 12507379 (Version 4)
Quarter: 2017Q1

REPORT INFORMATION
  Report Type: Report from Study
  Country: KR (occurrence: KR)
  Receive Date: 20160629
  Receipt Date: 20170222
  Transmission Date: 20170428
  Serious: No
  Sender: FDA-Public Use
  Company Number: KR-ROCHE-1782817

PATIENT
  Age: 43 Year
  Sex: Female
  Weight: 55.1 kg

DRUGS (30)
  1. PERTUZUMAB [Suspect]
     Active Substance: PERTUZUMAB
     Route: 042
     Dates: start: 20160331
  2. PENIRAMIN [Concomitant]
     Indication: URTICARIA
     Route: 042
     Dates: start: 20160218, end: 20160513
  3. CURAN [Concomitant]
     Active Substance: RANITIDINE HYDROCHLORIDE
     Route: 042
     Dates: start: 20160219, end: 20160603
  4. NASERON [Concomitant]
     Indication: NAUSEA
     Route: 042
     Dates: start: 20160219, end: 20160603
  5. PERTUZUMAB [Suspect]
     Active Substance: PERTUZUMAB
     Route: 042
     Dates: start: 20160310
  6. DOCETAXEL. [Suspect]
     Active Substance: DOCETAXEL
     Indication: BREAST CANCER
     Dosage: 03/JUN/2016: RECENT DOSE RECEIVED
     Route: 042
     Dates: start: 20160218
  7. NEURONTIN (SOUTH KOREA) [Concomitant]
     Route: 042
     Dates: start: 20160401, end: 20160401
  8. PENIRAMIN [Concomitant]
     Route: 042
     Dates: start: 20160603, end: 20160603
  9. PETHIDINE [Concomitant]
     Active Substance: MEPERIDINE
     Route: 030
     Dates: start: 20160218, end: 20160218
  10. DEXAMETHASONE. [Concomitant]
     Active Substance: DEXAMETHASONE
     Indication: NEUROPATHY PERIPHERAL
     Route: 042
     Dates: start: 20160218, end: 20160603
  11. NEURONTIN (SOUTH KOREA) [Concomitant]
     Route: 042
     Dates: start: 20160311, end: 20160311
  12. SANCUSO [Concomitant]
     Active Substance: GRANISETRON
     Route: 065
     Dates: start: 20160218, end: 20160310
  13. DEXAMETHASONE. [Concomitant]
     Active Substance: DEXAMETHASONE
     Route: 042
     Dates: start: 20160219, end: 20160603
  14. KYTRIL [Concomitant]
     Active Substance: GRANISETRON HYDROCHLORIDE
     Indication: NAUSEA
     Route: 048
     Dates: start: 20160218, end: 20160606
  15. NEURONTIN (SOUTH KOREA) [Concomitant]
     Route: 042
     Dates: start: 20160422, end: 20160422
  16. PENIRAMIN [Concomitant]
     Route: 042
     Dates: start: 20160603, end: 20160603
  17. PERTUZUMAB [Suspect]
     Active Substance: PERTUZUMAB
     Indication: BREAST CANCER
     Route: 042
     Dates: start: 20160218
  18. PERTUZUMAB [Suspect]
     Active Substance: PERTUZUMAB
     Route: 042
     Dates: start: 20160421
  19. PERTUZUMAB [Suspect]
     Active Substance: PERTUZUMAB
     Route: 042
     Dates: start: 20160603
  20. TRASTUZUMAB [Suspect]
     Active Substance: TRASTUZUMAB
     Dosage: 03/JUN/2016: RECENT DOSE RECEIVED
     Route: 042
     Dates: start: 20160218
  21. CURAN [Concomitant]
     Active Substance: RANITIDINE HYDROCHLORIDE
     Indication: GASTRITIS
     Route: 048
     Dates: start: 20160219, end: 20160613
  22. SUSPEN ER [Concomitant]
     Indication: HEADACHE
     Route: 048
     Dates: start: 20160218, end: 20160228
  23. TANTUM (SOUTH KOREA) [Concomitant]
     Indication: STOMATITIS
     Route: 065
     Dates: start: 20160218, end: 20160603
  24. PERTUZUMAB [Suspect]
     Active Substance: PERTUZUMAB
     Route: 042
     Dates: start: 20160512
  25. TRASTUZUMAB [Suspect]
     Active Substance: TRASTUZUMAB
     Indication: BREAST CANCER
     Route: 042
     Dates: start: 20160218
  26. NEURONTIN (SOUTH KOREA) [Concomitant]
     Indication: NEUROPATHY PERIPHERAL
     Route: 048
     Dates: start: 20160218
  27. NEURONTIN (SOUTH KOREA) [Concomitant]
     Route: 042
     Dates: start: 20160219, end: 20160219
  28. NEURONTIN (SOUTH KOREA) [Concomitant]
     Route: 042
     Dates: start: 20160513, end: 20160603
  29. NEOPLATIN (SOUTH KOREA) [Concomitant]
     Indication: BREAST CANCER
     Route: 042
     Dates: start: 20160219, end: 20160219
  30. TANTUM (SOUTH KOREA) [Concomitant]
     Route: 065
     Dates: start: 20160411, end: 20160502

REACTIONS (7)
  - Hepatic enzyme increased [Recovered/Resolved]
  - Diarrhoea [Recovered/Resolved]
  - Gastroenteritis [Recovered/Resolved]
  - Hypokalaemia [Recovered/Resolved]
  - Neutropenia [Recovered/Resolved]
  - Anaemia [Recovered/Resolved]
  - Stomatitis [Recovering/Resolving]

NARRATIVE: CASE EVENT DATE: 20160226
